FAERS Safety Report 5272427-X (Version None)
Quarter: 2007Q1

REPORT INFORMATION
  Report Type: 
  Country: None (occurrence: None)
  Receive Date: 20070320
  Receipt Date: 20070320
  Transmission Date: 20070707
  Serious: Yes (Life-Threatening, Hospitalization, Disabling)
  Sender: FDA-Public Use
  Company Number: None

PATIENT
  Age: 57 Year
  Sex: Female
  Weight: 126.5536 kg

DRUGS (3)
  1. VANCOMYCIN HCL [Suspect]
     Indication: ARTHRITIS INFECTIVE
     Dosage: N/A
     Dates: start: 20050830, end: 20050924
  2. VANCOMYCIN HCL [Suspect]
     Indication: POST PROCEDURAL INFECTION
     Dosage: N/A
     Dates: start: 20050830, end: 20050924
  3. CIPRO [Suspect]

REACTIONS (15)
  - ALOPECIA [None]
  - BACTERIA BLOOD IDENTIFIED [None]
  - BLOOD PRESSURE DECREASED [None]
  - DEHYDRATION [None]
  - DRUG HYPERSENSITIVITY [None]
  - ERYTHRODERMIC PSORIASIS [None]
  - INFECTION [None]
  - MALNUTRITION [None]
  - NAIL DISCOLOURATION [None]
  - NAIL HYPERTROPHY [None]
  - ONYCHOMADESIS [None]
  - RENAL FAILURE [None]
  - SHOCK HYPOGLYCAEMIC [None]
  - STOMATITIS [None]
  - WOUND [None]
